FAERS Safety Report 7484600-0 (Version None)
Quarter: 2011Q2

REPORT INFORMATION
  Report Type: 
  Country: None (occurrence: None)
  Receive Date: 20110517
  Receipt Date: 20110510
  Transmission Date: 20111010
  Serious: No
  Sender: FDA-Public Use
  Company Number: US-BIOGENIDEC-2011BI017784

PATIENT
  Age: 40 Year
  Sex: Female

DRUGS (3)
  1. TYSABRI [Suspect]
     Indication: MULTIPLE SCLEROSIS
     Route: 042
     Dates: start: 20081009
  2. TYSABRI [Suspect]
     Route: 042
     Dates: start: 20050111
  3. TYSABRI [Suspect]
     Route: 042
     Dates: start: 20060920, end: 20080108

REACTIONS (2)
  - URINARY TRACT INFECTION [None]
  - SINUSITIS [None]
